FAERS Safety Report 7150977-9 (Version None)
Quarter: 2010Q4

REPORT INFORMATION
  Report Type: 
  Country: None (occurrence: None)
  Receive Date: 20101210
  Receipt Date: 20101203
  Transmission Date: 20110411
  Serious: Yes (Other)
  Sender: FDA-Public Use
  Company Number: A0898715A

PATIENT
  Age: 49 Year
  Sex: Female

DRUGS (2)
  1. ADVAIR DISKUS 100/50 [Suspect]
     Route: 065
     Dates: start: 20080128
  2. VERAMYST [Suspect]
     Route: 065
     Dates: start: 20080128

REACTIONS (1)
  - BREAST CANCER [None]
